FAERS Safety Report 24073335 (Version 2)
Quarter: 2024Q3

REPORT INFORMATION
  Report Type: Spontaneous
  Country: JP (occurrence: JP)
  Receive Date: 20240710
  Receipt Date: 20240724
  Transmission Date: 20241016
  Serious: Yes (Other)
  Sender: OTSUKA
  Company Number: JP-OTSUKA-2024_019147

PATIENT
  Age: 54 Year
  Sex: Male

DRUGS (7)
  1. REXULTI [Suspect]
     Active Substance: BREXPIPRAZOLE
     Indication: Schizophrenia
     Dosage: 2MG/DAY
     Route: 048
     Dates: start: 20240619, end: 20240619
  2. REXULTI [Suspect]
     Active Substance: BREXPIPRAZOLE
     Dosage: 1MG/DAY
     Route: 048
     Dates: start: 20240424, end: 20240618
  3. OLANZAPINE [Concomitant]
     Active Substance: OLANZAPINE
     Indication: Product used for unknown indication
     Dosage: 12.5MG/DAY, AMINISTRATION PERIOD: LONG
     Route: 048
  4. RISPERIDONE [Concomitant]
     Active Substance: RISPERIDONE
     Indication: Product used for unknown indication
     Dosage: 7MG/DAY, AMINISTRATION PERIOD: LONG
     Route: 048
  5. RISPERIDONE [Concomitant]
     Active Substance: RISPERIDONE
     Dosage: ON AN AS-NEEDED BASIS
     Route: 048
  6. ETIZOLAM [Concomitant]
     Active Substance: ETIZOLAM
     Indication: Product used for unknown indication
     Dosage: DAILY DOSE: UNKNOWN, AMINISTRATION PERIOD: LONG
     Route: 048
  7. LORMETAZEPAM [Concomitant]
     Active Substance: LORMETAZEPAM
     Indication: Product used for unknown indication
     Dosage: DAILY DOSE: UNKNOWN, AMINISTRATION PERIOD: LONG
     Route: 048

REACTIONS (1)
  - Oculogyric crisis [Recovered/Resolved]

NARRATIVE: CASE EVENT DATE: 20240619
